FAERS Safety Report 25654278 (Version 3)
Quarter: 2025Q3

REPORT INFORMATION
  Report Type: Spontaneous
  Country: US (occurrence: US)
  Receive Date: 20250807
  Receipt Date: 20250903
  Transmission Date: 20251020
  Serious: Yes (Hospitalization, Other)
  Sender: BAYER HEALTHCARE PHARMACEUTICALS INC.
  Company Number: US-BAYER-2025A103446

PATIENT
  Age: 38 Year
  Sex: Female

DRUGS (1)
  1. MIRENA [Suspect]
     Active Substance: LEVONORGESTREL
     Dosage: 20?G/DAY
     Route: 015
     Dates: start: 201901, end: 20200615

REACTIONS (12)
  - Headache [Not Recovered/Not Resolved]
  - Syncope [Recovered/Resolved with Sequelae]
  - Psychotic disorder [Not Recovered/Not Resolved]
  - Depression suicidal [Recovered/Resolved with Sequelae]
  - Vision blurred [Recovered/Resolved]
  - Respiratory rate decreased [Recovered/Resolved]
  - Chest pain [Unknown]
  - Lactation disorder [Recovered/Resolved with Sequelae]
  - Mood swings [Recovering/Resolving]
  - Anxiety [Recovering/Resolving]
  - Balance disorder [Not Recovered/Not Resolved]
  - Calcium metabolism disorder [Not Recovered/Not Resolved]

NARRATIVE: CASE EVENT DATE: 20200101
